FAERS Safety Report 6190095-X (Version None)
Quarter: 2009Q2

REPORT INFORMATION
  Report Type: 
  Country: None (occurrence: None)
  Receive Date: 20090514
  Receipt Date: 20090430
  Transmission Date: 20091009
  Serious: Yes (Hospitalization, Disabling)
  Sender: FDA-Public Use
  Company Number: PHHY2009JP12774

PATIENT
  Age: 51 Year
  Sex: Female

DRUGS (12)
  1. SANDIMMUNE [Suspect]
     Dosage: 80 MG, QD
  2. SANDIMMUNE [Suspect]
     Dosage: 60 MG/DAY
  3. TOBRAMYCIN [Suspect]
     Dosage: 180 MG, QD
     Dates: start: 20080720
  4. AMPHOTERICIN B [Suspect]
     Indication: FUNGAL INFECTION
     Dosage: 250 MG
     Dates: start: 20080720, end: 20080722
  5. AMPHOTERICIN B [Suspect]
     Indication: FEBRILE NEUTROPENIA
  6. MEROPEN [Suspect]
     Dosage: 1.5 G, QD
  7. ITRIZOLE [Concomitant]
     Route: 048
  8. URSO 250 [Concomitant]
     Dosage: 600 MG, QD
  9. TAKEPRON [Concomitant]
     Dosage: 15 MG, QD
  10. LASIX [Concomitant]
     Dosage: 40 MG, QD
     Route: 042
     Dates: start: 20080720
  11. GRAN [Concomitant]
     Dosage: 450 MG
     Dates: start: 20080721
  12. ACYCLOVIR [Concomitant]
     Dosage: 750 MG

REACTIONS (8)
  - BLOOD CREATININE INCREASED [None]
  - BLOOD UREA INCREASED [None]
  - DYSPNOEA [None]
  - ENGRAFTMENT SYNDROME [None]
  - LUNG DISORDER [None]
  - MECHANICAL VENTILATION [None]
  - PYREXIA [None]
  - RENAL IMPAIRMENT [None]
